FAERS Safety Report 5257786-6 (Version None)
Quarter: 2007Q1

REPORT INFORMATION
  Report Type: 
  Country: None (occurrence: None)
  Receive Date: 20070307
  Receipt Date: 20070227
  Transmission Date: 20070707
  Serious: Yes (Hospitalization)
  Sender: FDA-Public Use
  Company Number: 2007CG00341

PATIENT
  Age: 73 Year
  Sex: Female

DRUGS (2)
  1. TENORMIN [Suspect]
     Indication: HYPERTENSION
     Route: 048
     Dates: end: 20070201
  2. RENITEC [Concomitant]
     Indication: HYPERTENSION
     Route: 048

REACTIONS (1)
  - INTERSTITIAL LUNG DISEASE [None]
